FAERS Safety Report 5458086-1 (Version None)
Quarter: 2007Q3

REPORT INFORMATION
  Report Type: 
  Country: None (occurrence: None)
  Receive Date: 20070919
  Receipt Date: 20070914
  Transmission Date: 20080115
  Serious: Yes (Other)
  Sender: FDA-Public Use
  Company Number: SEWYE302913SEP07

PATIENT
  Sex: Female

DRUGS (2)
  1. TYGACIL [Suspect]
     Indication: MYCOBACTERIUM ABSCESSUS INFECTION
     Route: 042
     Dates: start: 20070201
  2. CLARITHROMYCIN [Concomitant]

REACTIONS (5)
  - GENERALISED OEDEMA [None]
  - HYPOALBUMINAEMIA [None]
  - NAUSEA [None]
  - VOMITING [None]
  - WEIGHT DECREASED [None]
